FAERS Safety Report 8169594-7 (Version None)
Quarter: 2012Q1

REPORT INFORMATION
  Report Type: 
  Country: None (occurrence: None)
  Receive Date: 20120228
  Receipt Date: 20120216
  Transmission Date: 20120608
  Serious: Yes (Other)
  Sender: FDA-Public Use
  Company Number: US-BAYER-201033337NA

PATIENT
  Age: 34 Year
  Sex: Female

DRUGS (7)
  1. YAZ [Suspect]
     Indication: CONTRACEPTION
     Dosage: UNK
     Route: 048
     Dates: start: 20080401, end: 20080915
  2. YAZ [Suspect]
     Dosage: UNK
     Route: 048
     Dates: start: 20080601, end: 20081001
  3. CORTICOSTEROIDS [Concomitant]
  4. ARMORACIA RUSTICANA [Concomitant]
     Dosage: 20 MG, UNK
     Route: 048
  5. LYRICA [Concomitant]
     Dosage: 100 MG, UNK
     Route: 048
  6. YAZ [Suspect]
     Dosage: UNK
     Dates: start: 20080401, end: 20080915
  7. IBUPROFEN [Concomitant]
     Dosage: UNK
     Dates: start: 20070101, end: 20090901

REACTIONS (2)
  - PLEURISY [None]
  - THROMBOSIS [None]
